FAERS Safety Report 7009793-0 (Version None)
Quarter: 2010Q3

REPORT INFORMATION
  Report Type: 
  Country: None (occurrence: None)
  Receive Date: 20100923
  Receipt Date: 20100915
  Transmission Date: 20110219
  Serious: Yes (Hospitalization, Other)
  Sender: FDA-Public Use
  Company Number: ES-AMGEN-QUU404066

PATIENT
  Age: 45 Year
  Sex: Male
  Weight: 80 kg

DRUGS (4)
  1. NPLATE [Suspect]
     Indication: IDIOPATHIC THROMBOCYTOPENIC PURPURA
     Route: 058
     Dates: start: 20090421, end: 20100302
  2. DEXAMETHASONE [Concomitant]
     Route: 048
  3. OMEPRAZOLE [Concomitant]
     Route: 048
  4. IRON [Concomitant]
     Route: 042

REACTIONS (17)
  - ANAEMIA [None]
  - ASTHENIA [None]
  - BLOOD LACTATE DEHYDROGENASE INCREASED [None]
  - COUGH [None]
  - ECCHYMOSIS [None]
  - EPISTAXIS [None]
  - LEUKOCYTOSIS [None]
  - MEGAKARYOCYTES INCREASED [None]
  - MUCOSAL HAEMORRHAGE [None]
  - MYELOCYTOSIS [None]
  - MYELOFIBROSIS [None]
  - NEUTROPHILIA [None]
  - PETECHIAE [None]
  - PYREXIA [None]
  - RESPIRATORY TRACT INFECTION [None]
  - TACHYCARDIA [None]
  - THROMBOCYTOPENIA [None]
